FAERS Safety Report 25813959 (Version 1)
Quarter: 2025Q3

REPORT INFORMATION
  Report Type: Spontaneous
  Country: CN (occurrence: CN)
  Receive Date: 20250917
  Receipt Date: 20250917
  Transmission Date: 20251020
  Serious: Yes (Life-Threatening, Other)
  Sender: BAYER HEALTHCARE PHARMACEUTICALS INC.
  Company Number: CN-BAYER-2025A122564

PATIENT
  Age: 57 Year
  Sex: Female
  Weight: 65 kg

DRUGS (2)
  1. ULTRAVIST [Suspect]
     Active Substance: IOPROMIDE
     Indication: Computerised tomogram heart
     Route: 042
     Dates: start: 20250908, end: 20250908
  2. ULTRAVIST [Suspect]
     Active Substance: IOPROMIDE
     Indication: Angina unstable

REACTIONS (10)
  - Anaphylactic shock [Recovering/Resolving]
  - Blood pressure decreased [Recovering/Resolving]
  - Oxygen saturation decreased [Recovered/Resolved]
  - Chest discomfort [Recovering/Resolving]
  - Dyspnoea [None]
  - Hyperhidrosis [None]
  - Rash erythematous [None]
  - Face oedema [None]
  - Heart rate increased [None]
  - Chills [None]

NARRATIVE: CASE EVENT DATE: 20250908
